FAERS Safety Report 6438278-5 (Version None)
Quarter: 2009Q4

REPORT INFORMATION
  Report Type: 
  Country: None (occurrence: None)
  Receive Date: 20091112
  Receipt Date: 20091104
  Transmission Date: 20100525
  Serious: Yes (Hospitalization)
  Sender: FDA-Public Use
  Company Number: PHHO2009IT12723

PATIENT
  Sex: Female

DRUGS (2)
  1. ZOLEDRONATE T29581+ [Suspect]
     Indication: BONE DENSITY DECREASED
     Dosage: UNK
     Dates: start: 20040503, end: 20051115
  2. CGS 20267 T30748+ [Suspect]
     Indication: BONE DENSITY DECREASED
     Dosage: UNK
     Dates: start: 20040503, end: 20051115

REACTIONS (4)
  - GINGIVAL EROSION [None]
  - GINGIVAL ULCERATION [None]
  - GINGIVITIS [None]
  - STOMATITIS [None]
